FAERS Safety Report 24583145 (Version 1)
Quarter: 2024Q4

REPORT INFORMATION
  Report Type: Spontaneous
  Country: US (occurrence: US)
  Receive Date: 20241106
  Receipt Date: 20241106
  Transmission Date: 20250115
  Serious: No
  Sender: MERCK
  Company Number: US-009507513-2410USA002361

PATIENT
  Sex: Male
  Weight: 84.8 kg

DRUGS (25)
  1. WINREVAIR [Suspect]
     Active Substance: SOTATERCEPT-CSRK
     Indication: Product used for unknown indication
     Dosage: UNK
     Dates: start: 202406
  2. WINREVAIR [Suspect]
     Active Substance: SOTATERCEPT-CSRK
     Dosage: UNK
     Dates: start: 2024
  3. REMODULIN [Suspect]
     Active Substance: TREPROSTINIL
     Indication: Pulmonary arterial hypertension
     Dosage: 0.061 MICROGRAM PER KILOGRAM,CONTINUING; FORMULATION: INJECTION
     Route: 041
     Dates: start: 20140523
  4. REMODULIN [Suspect]
     Active Substance: TREPROSTINIL
     Dosage: FORMULATION: CASSETTES
     Route: 042
     Dates: start: 20210617
  5. VITAMIN B6 [Concomitant]
     Active Substance: PYRIDOXINE HYDROCHLORIDE
  6. VITAMIN B12 [Concomitant]
     Active Substance: CYANOCOBALAMIN
  7. FLOMAX [Concomitant]
     Active Substance: TAMSULOSIN HYDROCHLORIDE
  8. FOLIC ACID [Concomitant]
     Active Substance: FOLIC ACID
  9. TYLENOL EXTRA STRENGTH [Concomitant]
     Active Substance: ACETAMINOPHEN
  10. TRESIBA [Concomitant]
     Active Substance: INSULIN DEGLUDEC
  11. LOVASTATIN [Concomitant]
     Active Substance: LOVASTATIN
  12. CLONAZEPAM [Concomitant]
     Active Substance: CLONAZEPAM
  13. OMEPRAZOLE [Concomitant]
     Active Substance: OMEPRAZOLE
  14. POTASSIUM CHLORIDE [Concomitant]
     Active Substance: POTASSIUM CHLORIDE
  15. FINASTERIDE [Concomitant]
     Active Substance: FINASTERIDE
  16. MELATONIN [Concomitant]
     Active Substance: MELATONIN
  17. METOPROLOL SUCCINATE [Concomitant]
     Active Substance: METOPROLOL SUCCINATE
  18. ASCORBIC ACID [Concomitant]
     Active Substance: ASCORBIC ACID
  19. ZINC [Concomitant]
     Active Substance: ZINC
  20. ADCIRCA [Concomitant]
     Active Substance: TADALAFIL
  21. CIMERLI [Concomitant]
     Active Substance: RANIBIZUMAB-EQRN
  22. MAGNESIUM OXIDE [Concomitant]
     Active Substance: MAGNESIUM OXIDE
  23. VITAMIN D3 [Concomitant]
     Active Substance: CHOLECALCIFEROL
  24. LUMIGAN [Concomitant]
     Active Substance: BIMATOPROST
  25. LASIX [Concomitant]
     Active Substance: FUROSEMIDE

REACTIONS (2)
  - Weight increased [Unknown]
  - Hypoglycaemia [Unknown]

NARRATIVE: CASE EVENT DATE: 20240101
